FAERS Safety Report 7615611-X (Version None)
Quarter: 2011Q3

REPORT INFORMATION
  Report Type: 
  Country: None (occurrence: None)
  Receive Date: 20110711
  Receipt Date: 20110613
  Transmission Date: 20111222
  Serious: Yes (Hospitalization)
  Sender: FDA-Public Use
  Company Number: 14533251

PATIENT
  Age: 75 Year
  Sex: Female

DRUGS (16)
  1. AMLODIPINE BESYLATE [Concomitant]
  2. LASIX [Concomitant]
  3. LORAMET (LORMETAZEPAM) [Concomitant]
  4. CLEXANA (ENOXAPARNI SODIUM) [Concomitant]
  5. FRAXIPARINE (NADROPARIN SODIUM) [Concomitant]
  6. LANITOP (METILDIGOXIN) [Concomitant]
  7. GLUCOPHAGE [Concomitant]
  8. INSULINE (INSULIN) [Concomitant]
  9. ACTRAPID (INSULIN) [Concomitant]
  10. WARFARIN SODIUM [Suspect]
     Indication: THROMBOSIS PROPHYLAXIS
     Dosage: 8 MILLIGRAM 1 DAY ORAL
     Route: 048
     Dates: start: 20090223, end: 20090309
  11. AUGMENTIN '125' [Concomitant]
  12. ACETYLSALICYLIC ACID SRT [Concomitant]
  13. DUOVENT (FENOTEROL HYDROBROMIDE) [Concomitant]
  14. PLACEBO [Suspect]
     Indication: THROMBOSIS PROPHYLAXIS
     Dosage: ORAL
     Route: 048
     Dates: start: 20090223, end: 20090309
  15. SERETIDE (SALMETEROL XINAFOATE + FLUTICASONE PROPIONATE) [Concomitant]
  16. LANOXIN (FUROSEMIDE) [Concomitant]

REACTIONS (5)
  - CARDIAC FAILURE [None]
  - RESPIRATORY FAILURE [None]
  - PLEURAL EFFUSION [None]
  - NEOPLASM PROGRESSION [None]
  - OVARIAN CANCER METASTATIC [None]
